FAERS Safety Report 6795021-8 (Version None)
Quarter: 2010Q2

REPORT INFORMATION
  Report Type: 
  Country: None (occurrence: None)
  Receive Date: 20100625
  Receipt Date: 20100614
  Transmission Date: 20101027
  Serious: Yes (Other)
  Sender: FDA-Public Use
  Company Number: PHHY2010IL35819

PATIENT
  Age: 36 Year
  Sex: Female

DRUGS (3)
  1. AFINITOR [Suspect]
     Indication: RENAL CANCER
     Dosage: 10 MG DAILY
     Route: 048
     Dates: start: 20100414
  2. AFINITOR [Suspect]
     Dosage: 05 MG PER DAY FOR 10 DAYS
     Route: 048
  3. AFINITOR [Suspect]
     Dosage: 10 MG DAILY
     Route: 048

REACTIONS (8)
  - DRY SKIN [None]
  - FATIGUE [None]
  - INCORRECT DOSE ADMINISTERED [None]
  - PALMAR-PLANTAR ERYTHRODYSAESTHESIA SYNDROME [None]
  - PNEUMONIA [None]
  - SIALOADENITIS [None]
  - STOMATITIS [None]
  - WEIGHT INCREASED [None]
